FAERS Safety Report 7183252-7 (Version None)
Quarter: 2010Q4

REPORT INFORMATION
  Report Type: 
  Country: None (occurrence: None)
  Receive Date: 20101208
  Receipt Date: 20101123
  Transmission Date: 20110411
  Serious: Yes (Disabling)
  Sender: FDA-Public Use
  Company Number: 1000017574

PATIENT
  Age: 20 Year
  Sex: Female

DRUGS (2)
  1. CITALOPRAM (CITALOPRAM HYDROBROMIDE) [Suspect]
     Dosage: 40 MG (40 MG, 1 IN 1 D), ORAL; ORAL
     Route: 048
     Dates: start: 20100101, end: 20100901
  2. CITALOPRAM (CITALOPRAM HYDROBROMIDE) [Suspect]
     Dosage: 40 MG (40 MG, 1 IN 1 D), ORAL; ORAL
     Route: 048
     Dates: start: 20100901, end: 20101101

REACTIONS (6)
  - DEREALISATION [None]
  - DIZZINESS [None]
  - NAUSEA [None]
  - SLEEP PARALYSIS [None]
  - VERTIGO [None]
  - WITHDRAWAL SYNDROME [None]
